FAERS Safety Report 9771788 (Version 1)
Quarter: 2013Q3

REPORT INFORMATION
  Report Type: Spontaneous
  Country: US (occurrence: None)
  Receive Date: 20130917
  Receipt Date: 20130917
  Transmission Date: 20140515
  Serious: Yes (Death, Other)
  Sender: FDA-Public Use
  Company Number: 1308-1038

PATIENT
  Age: 79 Year
  Sex: Male

DRUGS (1)
  1. EYLEA (AFLIBERCEPT) (AFLIBERCEPT) [Suspect]
     Dates: start: 20121009, end: 20121113

REACTIONS (1)
  - Lung neoplasm malignant [None]
